FAERS Safety Report 5766331-8 (Version None)
Quarter: 2008Q2

REPORT INFORMATION
  Report Type: 
  Country: None (occurrence: None)
  Receive Date: 20080605
  Receipt Date: 20080521
  Transmission Date: 20081010
  Serious: Yes (Life-Threatening, Hospitalization)
  Sender: FDA-Public Use
  Company Number: 2008S1008870

PATIENT
  Age: 60 Year
  Sex: Female

DRUGS (8)
  1. CIPROFLOXACIN [Suspect]
     Indication: DRUG USE FOR UNKNOWN INDICATION
     Dosage: ;ORAL
     Route: 048
     Dates: start: 20080426, end: 20080429
  2. METRONIDAZOLE [Suspect]
     Dosage: ;ORAL
     Route: 048
     Dates: start: 20080426, end: 20080429
  3. WARFARIN SODIUM [Suspect]
     Dosage: ;ORAL
     Route: 048
     Dates: end: 20080429
  4. BENDROFLUMETHIAZIDE (CON.) [Concomitant]
  5. BISOPROLOL (CON.) [Concomitant]
  6. CARBAMAZEPINE (CON.) [Concomitant]
  7. LOSARTAN (CON.) [Concomitant]
  8. PANTOPRAZOLE (CON.) [Concomitant]

REACTIONS (3)
  - DRUG INTERACTION [None]
  - HAEMATOMA INFECTION [None]
  - INTERNATIONAL NORMALISED RATIO INCREASED [None]
